FAERS Safety Report 22079685 (Version 2)
Quarter: 2023Q1

REPORT INFORMATION
  Report Type: Spontaneous
  Country: GB (occurrence: GB)
  Receive Date: 20230309
  Receipt Date: 20230323
  Transmission Date: 20230417
  Serious: Yes (Other)
  Sender: FDA-Public Use
  Company Number: GB-MYLANLABS-2023M1001984

PATIENT
  Sex: Female

DRUGS (2)
  1. CLOZARIL [Suspect]
     Active Substance: CLOZAPINE
     Indication: Schizophrenia
     Dosage: UNK
     Route: 048
     Dates: start: 20090220
  2. FILGRASTIM [Suspect]
     Active Substance: FILGRASTIM
     Indication: Full blood count decreased
     Dosage: UNK
     Route: 065

REACTIONS (4)
  - Follicular lymphoma stage IV [Unknown]
  - White blood cell count increased [Recovered/Resolved]
  - Neutrophil count increased [Recovered/Resolved]
  - Off label use [Unknown]
